FAERS Safety Report 14864734 (Version 2)
Quarter: 2020Q2

REPORT INFORMATION
  Report Type: Report from Study
  Country: US (occurrence: US)
  Receive Date: 20180508
  Receipt Date: 20200408
  Transmission Date: 20200713
  Serious: Yes (Hospitalization)
  Sender: FDA-Public Use
  Company Number: US-ALKERMES INC.-ALK-2017-004303

PATIENT
  Age: 39 Year
  Sex: Male

DRUGS (3)
  1. NALOXONE [Concomitant]
     Active Substance: NALOXONE
     Indication: PRODUCT USED FOR UNKNOWN INDICATION
     Dosage: UNK
     Dates: start: 20170719, end: 20170804
  2. VIVITROL [Suspect]
     Active Substance: NALTREXONE
     Indication: DRUG USE DISORDER
     Dosage: UNK
     Dates: start: 20170804
  3. BUPROPION. [Suspect]
     Active Substance: BUPROPION
     Indication: DRUG USE DISORDER
     Dosage: 450 MG, QD
     Route: 048
     Dates: start: 20170804

REACTIONS (3)
  - Off label use [Not Recovered/Not Resolved]
  - Appendicitis [Recovered/Resolved]
  - Abdominal pain [Recovered/Resolved]

NARRATIVE: CASE EVENT DATE: 20170927
